FAERS Safety Report 8935363 (Version 1)
Quarter: 2012Q4

REPORT INFORMATION
  Report Type: Spontaneous
  Country: US (occurrence: None)
  Receive Date: 20121127
  Receipt Date: 20121127
  Transmission Date: 20130627
  Serious: Yes (Other)
  Sender: FDA-Public Use
  Company Number: None

PATIENT
  Age: 36 Year
  Sex: Female

DRUGS (1)
  1. COPAXONE [Suspect]
     Dosage: 20MG DAILY SUBQ
     Route: 058
     Dates: start: 20121019

REACTIONS (3)
  - Hypoaesthesia [None]
  - Muscle spasms [None]
  - Mobility decreased [None]
